FAERS Safety Report 12060841 (Version 2)
Quarter: 2016Q1

REPORT INFORMATION
  Report Type: Spontaneous
  Country: US (occurrence: US)
  Receive Date: 20160210
  Receipt Date: 20160321
  Transmission Date: 20160526
  Serious: No
  Sender: FDA-Public Use
  Company Number: US-TOLMAR INC.-1047601

PATIENT
  Age: 71 Year
  Sex: Female
  Weight: 70.46 kg

DRUGS (1)
  1. ERYTHROMYCIN AND BENZOYL PEROXIDE TOPICAL GEL USP, 3%;5% [Suspect]
     Active Substance: BENZOYL PEROXIDE\ERYTHROMYCIN
     Indication: ROSACEA
     Route: 061
     Dates: start: 2013

REACTIONS (4)
  - Product quality issue [None]
  - Drug ineffective [Not Recovered/Not Resolved]
  - Expired product administered [None]
  - Off label use [None]

NARRATIVE: CASE EVENT DATE: 2013
